FAERS Safety Report 9741032 (Version 1)
Quarter: 2013Q4

REPORT INFORMATION
  Report Type: Spontaneous
  Country: US (occurrence: US)
  Receive Date: 20131209
  Receipt Date: 20131209
  Transmission Date: 20140711
  Serious: No
  Sender: FDA-Public Use
  Company Number: US-PFIZER INC-2013351048

PATIENT
  Sex: Male

DRUGS (1)
  1. ALSUMA [Suspect]
     Indication: MIGRAINE
     Dosage: UNK
     Dates: start: 201206

REACTIONS (1)
  - Migraine [Unknown]
